FAERS Safety Report 13404108 (Version 3)
Quarter: 2017Q3

REPORT INFORMATION
  Report Type: Spontaneous
  Country: GB (occurrence: GB)
  Receive Date: 20170405
  Receipt Date: 20170811
  Transmission Date: 20171127
  Serious: Yes (Hospitalization, Other)
  Sender: FDA-Public Use
  Company Number: GB-SA-2017SA049705

PATIENT
  Age: 54 Year
  Sex: Female

DRUGS (2)
  1. ALEMTUZUMAB [Suspect]
     Active Substance: ALEMTUZUMAB
     Indication: RELAPSING-REMITTING MULTIPLE SCLEROSIS
     Route: 042
     Dates: start: 201505
  2. AVONEX [Concomitant]
     Active Substance: INTERFERON BETA-1A
     Dates: start: 201208

REACTIONS (5)
  - Pneumocystis jirovecii infection [Recovered/Resolved]
  - Acute respiratory distress syndrome [Unknown]
  - Lower respiratory tract infection [Recovered/Resolved]
  - Cytomegalovirus infection [Recovered/Resolved]
  - Respiratory distress [Recovered/Resolved]

NARRATIVE: CASE EVENT DATE: 2015
